FAERS Safety Report 9645964 (Version 1)
Quarter: 2013Q4

REPORT INFORMATION
  Report Type: Spontaneous
  Country: AT (occurrence: AT)
  Receive Date: 20131025
  Receipt Date: 20131025
  Transmission Date: 20140711
  Serious: Yes (Hospitalization, Other)
  Sender: FDA-Public Use
  Company Number: AT-ELI_LILLY_AND_COMPANY-AT201310004427

PATIENT
  Age: 65 Year
  Sex: Male
  Weight: 94 kg

DRUGS (16)
  1. CYMBALTA [Suspect]
     Indication: PRODUCT USED FOR UNKNOWN INDICATION
     Dosage: 120 MG, QD
     Route: 065
     Dates: start: 201304, end: 20130709
  2. CYMBALTA [Suspect]
     Dosage: 60 MG, QD
     Route: 065
     Dates: start: 20130710
  3. SEROQUEL [Suspect]
     Indication: PRODUCT USED FOR UNKNOWN INDICATION
     Dosage: 200 MG, UNKNOWN
     Route: 065
     Dates: start: 201304
  4. MIRTAZAPIN [Concomitant]
     Indication: PRODUCT USED FOR UNKNOWN INDICATION
     Dosage: 45 MG, UNKNOWN
     Route: 065
     Dates: start: 201304, end: 201306
  5. MIRTAZAPIN [Concomitant]
     Dosage: 90 MG, UNKNOWN
     Route: 065
     Dates: start: 201306
  6. GLADEM [Concomitant]
     Indication: PRODUCT USED FOR UNKNOWN INDICATION
     Dosage: 50 MG, UNKNOWN
     Route: 065
     Dates: start: 201304, end: 201306
  7. GLADEM [Concomitant]
     Dosage: 100 MG, UNKNOWN
     Route: 065
     Dates: start: 201306
  8. QUILONUM                           /00033702/ [Concomitant]
     Indication: PRODUCT USED FOR UNKNOWN INDICATION
     Dosage: 675 MG, UNKNOWN
     Route: 065
     Dates: start: 20130704, end: 20130708
  9. QUILONUM                           /00033702/ [Concomitant]
     Dosage: 900 MG, UNKNOWN
     Route: 065
     Dates: start: 20130709, end: 20130709
  10. QUILONUM                           /00033702/ [Concomitant]
     Dosage: 1125 MG, UNKNOWN
     Route: 065
     Dates: start: 20130710
  11. RIVOTRIL [Concomitant]
     Indication: PRODUCT USED FOR UNKNOWN INDICATION
     Dosage: 0.5 MG, UNKNOWN
     Route: 065
     Dates: start: 201304, end: 20130702
  12. RIVOTRIL [Concomitant]
     Dosage: 0.25 MG, UNKNOWN
     Route: 065
     Dates: start: 20130703, end: 20130707
  13. RIVOTRIL [Concomitant]
     Dosage: 0.75 MG, UNKNOWN
     Route: 065
     Dates: start: 20130708, end: 20130708
  14. RIVOTRIL [Concomitant]
     Dosage: 2 MG, UNKNOWN
     Route: 065
     Dates: start: 20130709
  15. EUTHYROX [Concomitant]
     Indication: PRODUCT USED FOR UNKNOWN INDICATION
     Dosage: 0.05 MG, UNKNOWN
     Route: 065
  16. ALNA [Concomitant]
     Indication: PRODUCT USED FOR UNKNOWN INDICATION
     Dosage: 0.4 MG, QD
     Route: 065
     Dates: start: 201304

REACTIONS (5)
  - Pulmonary embolism [Recovered/Resolved]
  - Depression [Unknown]
  - Non-Hodgkin^s lymphoma [Unknown]
  - Leukoencephalopathy [Unknown]
  - Cerebral microangiopathy [Unknown]
